FAERS Safety Report 4545883-X (Version None)
Quarter: 2005Q1

REPORT INFORMATION
  Report Type: 
  Country: None (occurrence: None)
  Receive Date: 20050103
  Receipt Date: 20041218
  Transmission Date: 20050727
  Serious: Yes (Other)
  Sender: FDA-Public Use
  Company Number: 2004118305

PATIENT
  Age: 58 Year
  Sex: Female
  Weight: 76.2043 kg

DRUGS (4)
  1. ESTRADIOL [Suspect]
     Indication: UTERINE POLYP
     Dosage: VAGINAL
     Route: 067
  2. TOPIRAMATE [Suspect]
     Indication: ILL-DEFINED DISORDER
     Dates: start: 20030601
  3. MEPERIDINE HYDROCHLORIDE [Concomitant]
  4. ZOLPIDEM TARTRATE [Concomitant]

REACTIONS (2)
  - NEPHROLITHIASIS [None]
  - VAGINAL PAIN [None]
